FAERS Safety Report 7789144-4 (Version None)
Quarter: 2011Q3

REPORT INFORMATION
  Report Type: 
  Country: None (occurrence: None)
  Receive Date: 20110930
  Receipt Date: 20110926
  Transmission Date: 20111222
  Serious: Yes (Other)
  Sender: FDA-Public Use
  Company Number: US-JNJFOC-20110910884

PATIENT
  Sex: Female
  Weight: 61.24 kg

DRUGS (2)
  1. TRAMADOL HCL [Suspect]
     Indication: BACK PAIN
     Route: 048
     Dates: start: 20100101
  2. NUCYNTA [Suspect]
     Indication: BACK PAIN
     Dosage: 1 IN 24 HOURS
     Route: 048
     Dates: start: 20110922, end: 20110901

REACTIONS (7)
  - DRUG INEFFECTIVE [None]
  - MALAISE [None]
  - CONFUSIONAL STATE [None]
  - DIZZINESS [None]
  - SOMNOLENCE [None]
  - TREMOR [None]
  - NAUSEA [None]
